FAERS Safety Report 23516220 (Version 1)
Quarter: 2024Q1

REPORT INFORMATION
  Report Type: 
  Country: None (occurrence: None)
  Receive Date: 20240213
  Receipt Date: 20240213
  Transmission Date: 20240410
  Serious: No
  Sender: FDA-Public Use
  Company Number: PH-ROCHE-3506108

PATIENT
  Weight: 74.4 kg

DRUGS (13)
  1. ATEZOLIZUMAB [Suspect]
     Active Substance: ATEZOLIZUMAB
     Dates: start: 20220510
  2. LENVATINIB [Suspect]
     Active Substance: LENVATINIB
     Dates: start: 20220510
  3. INVOKANA [Concomitant]
     Active Substance: CANAGLIFLOZIN
     Dates: start: 2018
  4. IMMUNPRO [Concomitant]
     Dosage: 1 TABLET
     Dates: start: 2020
  5. AVAMAX [Concomitant]
     Dates: start: 2012
  6. PERINDOPRIL [Concomitant]
     Active Substance: PERINDOPRIL
     Dates: start: 20220511
  7. MOISTURIZING LOTION (UNK INGREDIENTS) [Concomitant]
     Dates: start: 20220613
  8. BETAMETHASONE VALERATE [Concomitant]
     Active Substance: BETAMETHASONE VALERATE
     Dates: start: 20220930
  9. MICONAZOLE [Concomitant]
     Active Substance: MICONAZOLE
     Dates: start: 20220930
  10. LEVOTHYROXINE SODIUM [Concomitant]
     Active Substance: LEVOTHYROXINE SODIUM
     Dates: start: 20230318
  11. LEVOTHYROXINE SODIUM [Concomitant]
     Active Substance: LEVOTHYROXINE SODIUM
     Dates: start: 20230318
  12. TRANSARTERIAL CHEMOEMBOLIZATION (UNK INGREDIENTS) [Concomitant]
     Dates: start: 20200429
  13. DOMPERIDONE\PANTOPRAZOLE SODIUM [Concomitant]
     Active Substance: DOMPERIDONE\PANTOPRAZOLE SODIUM
     Dates: start: 20240204

REACTIONS (1)
  - Abdominal pain [None]

NARRATIVE: CASE EVENT DATE: 20240206
